FAERS Safety Report 18109405 (Version 1)
Quarter: 2020Q3

REPORT INFORMATION
  Report Type: Report from Study
  Country: CA (occurrence: CA)
  Receive Date: 20200804
  Receipt Date: 20200804
  Transmission Date: 20201103
  Serious: Yes (Death)
  Sender: FDA-Public Use
  Company Number: CA-ASTRAZENECA-2020SE95381

PATIENT
  Sex: Male

DRUGS (8)
  1. CHLORAMBUCIL [Concomitant]
     Active Substance: CHLORAMBUCIL
  2. ALEMTUZUMAB [Concomitant]
     Active Substance: ALEMTUZUMAB
  3. PREDNISONE. [Concomitant]
     Active Substance: PREDNISONE
  4. FLUDARABINE [Concomitant]
     Active Substance: FLUDARABINE PHOSPHATE
  5. METHOTREXATE. [Concomitant]
     Active Substance: METHOTREXATE
  6. CALQUENCE [Suspect]
     Active Substance: ACALABRUTINIB
     Indication: CHRONIC LYMPHOCYTIC LEUKAEMIA
     Route: 048
     Dates: start: 20200630
  7. INTEFERON [Concomitant]
  8. IMBRUVICA [Concomitant]
     Active Substance: IBRUTINIB

REACTIONS (1)
  - Death [Fatal]
